FAERS Safety Report 12394708 (Version 2)
Quarter: 2016Q2

REPORT INFORMATION
  Report Type: Other
  Country: GB (occurrence: GB)
  Receive Date: 20160523
  Receipt Date: 20160607
  Transmission Date: 20160815
  Serious: Yes (Other)
  Sender: FDA-Public Use
  Company Number: GB-HQ SPECIALTY-GB-2016INT000306

PATIENT
  Sex: Female

DRUGS (4)
  1. METHOTREXATE SODIUM. [Suspect]
     Active Substance: METHOTREXATE SODIUM
     Indication: RHEUMATOID ARTHRITIS
     Dosage: 2.5 MG 2 TABLETS IN FIRST WEEK TITRATED UP TO 5 TABLETS WEEKLY
  2. SOLPADOL                           /00116401/ [Concomitant]
     Active Substance: ACETAMINOPHEN\CODEINE PHOSPHATE
     Indication: PAIN
     Dosage: 2 DOSAGE FORM
     Dates: start: 200503
  3. LODINE [Concomitant]
     Active Substance: ETODOLAC
     Indication: PAIN
     Dosage: 600 MG, 1 IN 1 D
  4. DEPO-MEDRONE [Concomitant]
     Active Substance: METHYLPREDNISOLONE
     Indication: PAIN
     Dosage: 120 MG, UNK
     Route: 030

REACTIONS (2)
  - Drug intolerance [Unknown]
  - Liver disorder [Unknown]
